FAERS Safety Report 5698357-7 (Version None)
Quarter: 2008Q2

REPORT INFORMATION
  Report Type: 
  Country: None (occurrence: None)
  Receive Date: 20080403
  Receipt Date: 20080318
  Transmission Date: 20081010
  Serious: Yes (Life-Threatening, Hospitalization)
  Sender: FDA-Public Use
  Company Number: DSA_31656_2008

PATIENT
  Age: 53 Year
  Sex: Male
  Weight: 85 kg

DRUGS (2)
  1. DILTIAZEM [Suspect]
     Indication: DRUG USE FOR UNKNOWN INDICATION
     Dosage: 90 MG QD
  2. SOTALOL HCL [Suspect]
     Indication: ARRHYTHMIA PROPHYLAXIS
     Dosage: 160 MG QD

REACTIONS (8)
  - ATRIAL FLUTTER [None]
  - BRADYCARDIA [None]
  - CARDIOGENIC SHOCK [None]
  - DIZZINESS [None]
  - DRUG INTERACTION [None]
  - HEART RATE INCREASED [None]
  - MITRAL VALVE INCOMPETENCE [None]
  - TRICUSPID VALVE INCOMPETENCE [None]
